FAERS Safety Report 8406280-X (Version None)
Quarter: 2012Q2

REPORT INFORMATION
  Report Type: 
  Country: None (occurrence: None)
  Receive Date: 20120604
  Receipt Date: 20120530
  Transmission Date: 20120825
  Serious: No
  Sender: FDA-Public Use
  Company Number: PHEH2012US011063

PATIENT
  Age: 80 Year
  Sex: Male

DRUGS (2)
  1. TASIGNA [Suspect]
     Indication: CHRONIC MYELOID LEUKAEMIA
     Dosage: 300 MG, QD
     Route: 048
  2. AMIODARONE HYDROCHLORIDE [Suspect]

REACTIONS (2)
  - CHEST DISCOMFORT [None]
  - DRUG INTERACTION [None]
